FAERS Safety Report 19060344 (Version 2)
Quarter: 2021Q2

REPORT INFORMATION
  Report Type: Spontaneous
  Country: FR (occurrence: FR)
  Receive Date: 20210325
  Receipt Date: 20210407
  Transmission Date: 20210717
  Serious: Yes (Hospitalization, Other)
  Sender: FDA-Public Use
  Company Number: FR-INDIVIOR US-INDV-128955-2021

PATIENT

DRUGS (2)
  1. ALCOHOL. [Suspect]
     Active Substance: ALCOHOL
     Indication: ALCOHOL USE
     Dosage: UNK
     Route: 048
  2. SUBUTEX [Suspect]
     Active Substance: BUPRENORPHINE HYDROCHLORIDE
     Indication: DRUG ABUSE
     Dosage: UNK
     Route: 042
     Dates: start: 2012

REACTIONS (7)
  - Agitation [Recovered/Resolved]
  - Drug abuse [Not Recovered/Not Resolved]
  - Seizure [Recovered/Resolved]
  - Amnesia [Recovered/Resolved]
  - Hepatitis cholestatic [Recovering/Resolving]
  - Epilepsy [Unknown]
  - Intentional product use issue [Unknown]

NARRATIVE: CASE EVENT DATE: 2012
